FAERS Safety Report 20182801 (Version 1)
Quarter: 2021Q4

REPORT INFORMATION
  Report Type: Spontaneous
  Country: US (occurrence: None)
  Receive Date: 20211209
  Receipt Date: 20211209
  Transmission Date: 20220303
  Serious: No
  Sender: FDA-Public Use
  Company Number: None

PATIENT
  Age: 82 Year
  Sex: Female

DRUGS (2)
  1. ZANTAC 360 [Suspect]
     Active Substance: FAMOTIDINE
     Dates: end: 20211209
  2. ZANTAC 360 [Concomitant]
     Active Substance: FAMOTIDINE
     Dates: end: 20211209

REACTIONS (2)
  - Product prescribing error [None]
  - Incorrect dose administered [None]

NARRATIVE: CASE EVENT DATE: 20211209
